FAERS Safety Report 4921159-3 (Version None)
Quarter: 2006Q1

REPORT INFORMATION
  Report Type: 
  Country: None (occurrence: None)
  Receive Date: 20060217
  Receipt Date: 20060210
  Transmission Date: 20060701
  Serious: Yes (Life-Threatening)
  Sender: FDA-Public Use
  Company Number: 2005EU002738

PATIENT
  Age: 31 Year
  Sex: Male

DRUGS (2)
  1. PROTOPIC [Suspect]
     Indication: DERMATITIS ATOPIC
     Dosage: 0.1%, UID/QD, TOPICAL
     Route: 061
     Dates: start: 20031201, end: 20051129
  2. BETNOVATE (BETAMETHASONE) [Concomitant]

REACTIONS (1)
  - NON-HODGKIN'S LYMPHOMA STAGE III [None]
